FAERS Safety Report 9879241 (Version 2)
Quarter: 2014Q1

REPORT INFORMATION
  Report Type: Spontaneous
  Country: IT (occurrence: IT)
  Receive Date: 20140206
  Receipt Date: 20140217
  Transmission Date: 20141002
  Serious: Yes (Hospitalization)
  Sender: FDA-Public Use
  Company Number: PHHY2014IT013381

PATIENT
  Age: 47 Year
  Sex: Male

DRUGS (7)
  1. CARBAMAZEPINE [Suspect]
     Indication: INTENTIONAL SELF-INJURY
     Dosage: 5 G, ONCE/SINGLE
     Route: 048
     Dates: start: 20131003, end: 20131003
  2. RIVOTRIL [Suspect]
     Indication: INTENTIONAL SELF-INJURY
     Dosage: 10 ML, ONCE/SINGLE
     Route: 048
     Dates: start: 20131003, end: 20131003
  3. NICETILE [Concomitant]
     Dosage: UNK
  4. BENEXOL [Concomitant]
     Dosage: UNK
  5. PALEXIA [Concomitant]
     Dosage: UNK
  6. FOLINA [Concomitant]
     Dosage: UNK
  7. ALLOPURINOL [Concomitant]
     Dosage: UNK

REACTIONS (4)
  - Sopor [Recovered/Resolved]
  - Intentional self-injury [Recovered/Resolved]
  - Dyspnoea [Recovered/Resolved]
  - Bradycardia [Recovered/Resolved]
